FAERS Safety Report 4651645-5 (Version None)
Quarter: 2005Q2

REPORT INFORMATION
  Report Type: 
  Country: None (occurrence: None)
  Receive Date: 20050404
  Receipt Date: 20041104
  Transmission Date: 20051028
  Serious: No
  Sender: FDA-Public Use
  Company Number: USA041183197

PATIENT
  Age: 58 Year
  Sex: Female

DRUGS (3)
  1. CYMBALTA [Suspect]
     Indication: DEPRESSION
     Dosage: 60 MG DAY
     Dates: start: 20040901
  2. HYDROCODONE [Concomitant]
  3. PREVACID [Concomitant]

REACTIONS (2)
  - SOMNOLENCE [None]
  - STOMACH DISCOMFORT [None]
